FAERS Safety Report 9968186 (Version 1)
Quarter: 2014Q1

REPORT INFORMATION
  Report Type: Report from Study
  Country: US (occurrence: US)
  Receive Date: 20140306
  Receipt Date: 20140306
  Transmission Date: 20141002
  Serious: No
  Sender: FDA-Public Use
  Company Number: US-ABBVIE-13P-163-1140388-00

PATIENT
  Age: 71 Year
  Sex: Female

DRUGS (5)
  1. HUMIRA [Suspect]
     Indication: CROHN^S DISEASE
     Dates: start: 20130724
  2. CLIMARA [Concomitant]
     Indication: HORMONE REPLACEMENT THERAPY
  3. PROTONIX [Concomitant]
     Indication: ULCER
     Dosage: EVERY MORNING
  4. ASA [Concomitant]
     Indication: INTESTINAL STENOSIS
     Dosage: 81MG DAILY
  5. BENADRYL [Concomitant]
     Indication: SEASONAL ALLERGY
     Route: 048

REACTIONS (2)
  - Skin disorder [Not Recovered/Not Resolved]
  - Rectal haemorrhage [Not Recovered/Not Resolved]
